FAERS Safety Report 8547636-4 (Version None)
Quarter: 2012Q3

REPORT INFORMATION
  Report Type: 
  Country: None (occurrence: None)
  Receive Date: 20120727
  Receipt Date: 20120427
  Transmission Date: 20120928
  Serious: Yes (Other)
  Sender: FDA-Public Use
  Company Number: US-ASTRAZENECA-2012SE27534

PATIENT
  Age: 35 Year
  Sex: Male
  Weight: 81.6 kg

DRUGS (2)
  1. SEROQUEL [Suspect]
     Indication: SCHIZOAFFECTIVE DISORDER
     Route: 048
     Dates: start: 20100101
  2. WELLBUTRIN SR [Suspect]
     Indication: SCHIZOAFFECTIVE DISORDER
     Route: 048

REACTIONS (2)
  - NEUTROPENIA [None]
  - LEUKOPENIA [None]
